FAERS Safety Report 5940478-5 (Version None)
Quarter: 2008Q4

REPORT INFORMATION
  Report Type: 
  Country: None (occurrence: None)
  Receive Date: 20081104
  Receipt Date: 20081029
  Transmission Date: 20090506
  Serious: Yes (Life-Threatening)
  Sender: FDA-Public Use
  Company Number: GB-WYE-G02469708

PATIENT
  Age: 26 Year
  Sex: Female

DRUGS (6)
  1. EFFEXOR [Suspect]
     Indication: DEPRESSION
     Dosage: 225MG, FREQUENCY UNKNOWN
     Route: 048
     Dates: start: 20080514, end: 20080604
  2. RISPERIDONE [Concomitant]
     Indication: DEPRESSION
     Dosage: UNKNOWN
     Route: 048
     Dates: end: 20080526
  3. OLANZAPINE [Concomitant]
     Indication: DEPRESSION
     Dosage: 10MG DAILY
     Route: 048
     Dates: start: 20080528
  4. PROCYCLIDINE HYDROCHLORIDE 2MG TAB [Concomitant]
     Route: 048
     Dates: start: 20080514
  5. CITALOPRAM HYDROBROMIDE [Concomitant]
     Indication: DEPRESSION
     Dosage: 40MG, FREQUENCY UNKNOWN
     Route: 048
     Dates: start: 20080401, end: 20080501
  6. DIAZEPAM [Concomitant]
     Dosage: UNKNOWN

REACTIONS (3)
  - CIRCULATORY COLLAPSE [None]
  - HYPOVOLAEMIC SHOCK [None]
  - SPLENIC RUPTURE [None]
